FAERS Safety Report 11276673 (Version 1)
Quarter: 2015Q3

REPORT INFORMATION
  Report Type: Spontaneous
  Country: US (occurrence: US)
  Receive Date: 20150716
  Receipt Date: 20150716
  Transmission Date: 20151125
  Serious: Yes (Other)
  Sender: FDA-Public Use
  Company Number: US-BAYER-2015-375974

PATIENT
  Sex: Female

DRUGS (2)
  1. MIRENA [Suspect]
     Active Substance: LEVONORGESTREL
     Indication: MENORRHAGIA
     Dosage: 20 MCG/24HR, CONT
     Route: 015
     Dates: start: 20150701
  2. MIRENA [Suspect]
     Active Substance: LEVONORGESTREL
     Indication: CONTRACEPTION
     Dosage: 20 MCG/24HR, CONT
     Route: 015
     Dates: start: 201004, end: 20150521

REACTIONS (8)
  - Malaise [None]
  - Pelvic pain [Recovered/Resolved]
  - Pelvic cyst [Not Recovered/Not Resolved]
  - Abdominal rigidity [None]
  - Genital haemorrhage [None]
  - Vaginal haemorrhage [None]
  - Vitamin D decreased [None]
  - Proctalgia [Recovering/Resolving]

NARRATIVE: CASE EVENT DATE: 2014
